FAERS Safety Report 21040297 (Version 1)
Quarter: 2022Q3

REPORT INFORMATION
  Report Type: Spontaneous
  Country: US (occurrence: US)
  Receive Date: 20220704
  Receipt Date: 20220704
  Transmission Date: 20221027
  Serious: No
  Sender: FDA-Public Use
  Company Number: US-BRISTOL-MYERS SQUIBB COMPANY-2022-068068

PATIENT
  Age: 88 Year
  Sex: Female
  Weight: 75.00 kg

DRUGS (1)
  1. REVLIMID [Suspect]
     Active Substance: LENALIDOMIDE
     Indication: B-cell lymphoma
     Dosage: FREQUENCY: 1-21, EVERY 28 DAYS
     Route: 048
     Dates: start: 20220624

REACTIONS (3)
  - Asthenia [Unknown]
  - Diarrhoea [Unknown]
  - Intentional product use issue [Unknown]
